FAERS Safety Report 7414763-4 (Version None)
Quarter: 2011Q2

REPORT INFORMATION
  Report Type: 
  Country: None (occurrence: None)
  Receive Date: 20110414
  Receipt Date: 20110331
  Transmission Date: 20111010
  Serious: Yes (Other)
  Sender: FDA-Public Use
  Company Number: GR-JNJFOC-20110400797

PATIENT
  Age: 53 Year
  Sex: Male
  Weight: 117 kg

DRUGS (4)
  1. METHOTREXATE [Concomitant]
     Indication: PSORIASIS
     Route: 048
  2. INFLIXIMAB, RECOMBINANT [Suspect]
     Dosage: 8 DOSES
     Route: 042
  3. METFORMIN [Concomitant]
     Indication: HYPERGLYCAEMIA
     Route: 048
  4. INFLIXIMAB, RECOMBINANT [Suspect]
     Indication: PSORIASIS
     Route: 042

REACTIONS (1)
  - NON-SMALL CELL LUNG CANCER [None]
